FAERS Safety Report 5501621-5 (Version None)
Quarter: 2007Q4

REPORT INFORMATION
  Report Type: 
  Country: None (occurrence: None)
  Receive Date: 20071030
  Receipt Date: 20071017
  Transmission Date: 20080405
  Serious: Yes (Death, Hospitalization, Other)
  Sender: FDA-Public Use
  Company Number: US-ELI_LILLY_AND_COMPANY-US200707006468

PATIENT
  Sex: Female

DRUGS (1)
  1. FORTEO [Suspect]
     Indication: OSTEOPOROSIS
     Dosage: 20 UG, UNK
     Dates: start: 20070724

REACTIONS (5)
  - BLINDNESS TRANSIENT [None]
  - CARDIOVASCULAR DISORDER [None]
  - HOSPITALISATION [None]
  - INJECTION SITE BRUISING [None]
  - INJECTION SITE PAIN [None]
